FAERS Safety Report 23902993 (Version 1)
Quarter: 2024Q2

REPORT INFORMATION
  Report Type: Spontaneous
  Country: NO (occurrence: NO)
  Receive Date: 20240527
  Receipt Date: 20240527
  Transmission Date: 20240716
  Serious: Yes (Other)
  Sender: FDA-Public Use
  Company Number: None

PATIENT
  Age: 69 Year
  Sex: Female

DRUGS (3)
  1. NICOTINELL [Suspect]
     Active Substance: NICOTINE
     Indication: Nicotine dependence
     Dosage: 10-12 TIMES A DAY
     Dates: start: 2019
  2. NICOTINELL [Suspect]
     Active Substance: NICOTINE
     Indication: Ex-tobacco user
     Dosage: HALF OF THE MEDICATED CHEWING-GUM EACH TIME
     Route: 050
     Dates: start: 20210127
  3. NICOTINELL [Suspect]
     Active Substance: NICOTINE
     Indication: Nicotine dependence
     Dosage: 2
     Dates: start: 202312, end: 202312

REACTIONS (10)
  - Angina pectoris [Unknown]
  - Throat irritation [Unknown]
  - Palpitations [Unknown]
  - Gastrointestinal disorder [Unknown]
  - Malaise [Recovering/Resolving]
  - Nausea [Unknown]
  - Blood glucose increased [Recovered/Resolved with Sequelae]
  - Pyrexia [Unknown]
  - Joint dislocation [Unknown]
  - Cough [Unknown]

NARRATIVE: CASE EVENT DATE: 20210127
